FAERS Safety Report 4382942-9 (Version None)
Quarter: 2004Q2

REPORT INFORMATION
  Report Type: 
  Country: None (occurrence: None)
  Receive Date: 20040622
  Receipt Date: 20040514
  Transmission Date: 20050107
  Serious: Yes (Life-Threatening, Hospitalization, Disabling)
  Sender: FDA-Public Use
  Company Number: FR-MERCK-0405FRA00052

PATIENT
  Age: 70 Year
  Sex: Female

DRUGS (8)
  1. CANDESARTAN [Concomitant]
     Indication: HYPERTENSION
     Route: 048
     Dates: end: 20040501
  2. FLECAINIDE ACETATE [Concomitant]
     Indication: ATRIAL FIBRILLATION
     Route: 048
     Dates: end: 20040501
  3. FLUINDIONE [Concomitant]
     Indication: ATRIAL FIBRILLATION
     Route: 048
     Dates: end: 20040501
  4. LATANOPROST [Concomitant]
     Indication: GLAUCOMA
     Route: 047
  5. NICARDIPINE HCL [Suspect]
     Indication: HYPERTENSION
     Route: 048
     Dates: end: 20040415
  6. NICARDIPINE HCL [Suspect]
     Route: 048
     Dates: start: 20040416, end: 20040501
  7. OMEPRAZOLE [Concomitant]
     Route: 048
     Dates: start: 20040415, end: 20040430
  8. ZOCOR [Suspect]
     Indication: HYPERCHOLESTEROLAEMIA
     Route: 048
     Dates: start: 19940101, end: 20040501

REACTIONS (4)
  - DIAPHRAGMATIC PARALYSIS [None]
  - DRUG INTERACTION [None]
  - HEPATITIS [None]
  - RHABDOMYOLYSIS [None]
